FAERS Safety Report 4828481-X (Version None)
Quarter: 2005Q4

REPORT INFORMATION
  Report Type: 
  Country: None (occurrence: None)
  Receive Date: 20051110
  Receipt Date: 20051026
  Transmission Date: 20060501
  Serious: Yes (Hospitalization, Disabling)
  Sender: FDA-Public Use
  Company Number: 2004-0007252

PATIENT
  Age: 30 Year
  Sex: Male

DRUGS (7)
  1. TENOFOVIR DISOPROXIL FUMARATE (TENOFOVIR DISOPROXIL FUMARATE) (TABLET) [Suspect]
     Indication: HIV INFECTION
     Dosage: 300 MG, 1 IN 1 D, ORAL
     Route: 048
     Dates: start: 20020722, end: 20040726
  2. VIDEX [Suspect]
     Indication: HIV INFECTION
     Dosage: 250 MG, 1 IN 1 D, ORAL
     Route: 048
     Dates: start: 20020722, end: 20040526
  3. REYATAZ [Suspect]
     Indication: HIV INFECTION
     Dosage: 300 MG, 1 IN 1 D, ORAL
     Route: 048
     Dates: start: 20040119, end: 20040526
  4. KALETRA [Suspect]
     Indication: HIV INFECTION
     Dosage: 400 MG, 2 IN 1 D, ORAL
     Route: 048
     Dates: start: 20020408, end: 20050119
  5. ZERIT [Suspect]
     Indication: HIV INFECTION
     Dosage: 50 MG, 1 IN 1 D, ORAL
     Route: 048
     Dates: start: 20040727, end: 20040921
  6. CHRISTMASSIN-M (FACTOR IX) [Concomitant]
  7. NOVACT M (FACTOR IX) [Concomitant]

REACTIONS (19)
  - ABASIA [None]
  - ABDOMINAL DISTENSION [None]
  - ARTHRALGIA [None]
  - BACK PAIN [None]
  - BLOOD ALKALINE PHOSPHATASE INCREASED [None]
  - BONE PAIN [None]
  - CONDITION AGGRAVATED [None]
  - FANCONI SYNDROME ACQUIRED [None]
  - GASTRIC ULCER [None]
  - GASTRIC ULCER HAEMORRHAGE [None]
  - GLYCOSURIA [None]
  - HYPERPHOSPHATAEMIA [None]
  - HYPOURICAEMIA [None]
  - LABORATORY TEST ABNORMAL [None]
  - MALAISE [None]
  - MEDICAL DEVICE PAIN [None]
  - MELAENA [None]
  - OSTEOMALACIA [None]
  - PROTEINURIA [None]
